FAERS Safety Report 5863466-6 (Version None)
Quarter: 2008Q3

REPORT INFORMATION
  Report Type: 
  Country: None (occurrence: None)
  Receive Date: 20080828
  Receipt Date: 20080818
  Transmission Date: 20090109
  Serious: Yes (Other)
  Sender: FDA-Public Use
  Company Number: NL-PFIZER INC-2008070088

PATIENT
  Sex: Male
  Weight: 95 kg

DRUGS (2)
  1. XALATAN [Suspect]
     Indication: GLAUCOMA
     Route: 047
  2. COSOPT [Suspect]
     Indication: GLAUCOMA
     Route: 047

REACTIONS (1)
  - CATARACT [None]
